FAERS Safety Report 25808034 (Version 1)
Quarter: 2025Q3

REPORT INFORMATION
  Report Type: Spontaneous
  Country: GB (occurrence: GB)
  Receive Date: 20250916
  Receipt Date: 20250916
  Transmission Date: 20251020
  Serious: Yes (Other)
  Sender: NOVO NORDISK
  Company Number: None

PATIENT

DRUGS (4)
  1. WEGOVY [Suspect]
     Active Substance: SEMAGLUTIDE
     Indication: Product used for unknown indication
  2. ATENOLOL [Concomitant]
     Active Substance: ATENOLOL
  3. ASPIRIN [Concomitant]
     Active Substance: ASPIRIN
  4. DOXAZOSIN [Concomitant]
     Active Substance: DOXAZOSIN MESYLATE

REACTIONS (2)
  - Blood pressure increased [Recovered/Resolved]
  - Dehydration [Recovered/Resolved]
